FAERS Safety Report 13204508 (Version 1)
Quarter: 2017Q1

REPORT INFORMATION
  Report Type: Spontaneous
  Country: BR (occurrence: BR)
  Receive Date: 20170209
  Receipt Date: 20170209
  Transmission Date: 20170428
  Serious: Yes (Hospitalization)
  Sender: FDA-Public Use
  Company Number: PHHY2017BR019332

PATIENT
  Sex: Female
  Weight: 50 kg

DRUGS (1)
  1. CODATEN [Suspect]
     Active Substance: CODEINE PHOSPHATE\DICLOFENAC SODIUM
     Indication: PAIN
     Dosage: 1 DF, Q8H
     Route: 048

REACTIONS (2)
  - Jaundice [Unknown]
  - Pain [Unknown]
